FAERS Safety Report 7121898-2 (Version None)
Quarter: 2010Q4

REPORT INFORMATION
  Report Type: 
  Country: None (occurrence: None)
  Receive Date: 20101124
  Receipt Date: 20100825
  Transmission Date: 20110411
  Serious: Yes (Other)
  Sender: FDA-Public Use
  Company Number: US-ROCHE-743700

PATIENT

DRUGS (1)
  1. ACTEMRA [Suspect]
     Dosage: FORM: INFUSION
     Route: 065

REACTIONS (1)
  - PULMONARY EMBOLISM [None]
